FAERS Safety Report 7659844-5 (Version None)
Quarter: 2011Q3

REPORT INFORMATION
  Report Type: 
  Country: None (occurrence: None)
  Receive Date: 20110805
  Receipt Date: 20110801
  Transmission Date: 20111222
  Serious: Yes (Other)
  Sender: FDA-Public Use
  Company Number: NL-JNJFOC-20110702300

PATIENT

DRUGS (55)
  1. DOXORUBICIN HYDROCHLORIDE [Suspect]
     Dosage: DAY 1
     Route: 042
  2. CYCLOPHOSPHAMIDE [Suspect]
     Dosage: DAY 1
     Route: 042
  3. VINCRISTINE [Suspect]
     Dosage: WITH A MAXIMUM OF 1.4MG/M2 ON DAY 1
     Route: 042
  4. PREDNISONE [Suspect]
     Dosage: ON DAYS 1, 2, 3, 4 AND 5
     Route: 048
  5. MABCAMPATH [Suspect]
     Route: 058
  6. MABCAMPATH [Suspect]
     Route: 058
  7. DOXORUBICIN HYDROCHLORIDE [Suspect]
     Indication: T-CELL LYMPHOMA
     Dosage: DAY 1
     Route: 042
  8. CYCLOPHOSPHAMIDE [Suspect]
     Dosage: DAY 1
     Route: 042
  9. CYCLOPHOSPHAMIDE [Suspect]
     Dosage: DAY 1
     Route: 042
  10. VINCRISTINE [Suspect]
     Dosage: WITH A MAXIMUM OF 1.4MG/M2 ON DAY 1
     Route: 042
  11. MABCAMPATH [Suspect]
     Indication: T-CELL LYMPHOMA
     Route: 058
  12. ANTIHISTAMINES [Concomitant]
     Indication: PREMEDICATION
     Route: 065
  13. DOXORUBICIN HYDROCHLORIDE [Suspect]
     Dosage: DAY 1
     Route: 042
  14. DOXORUBICIN HYDROCHLORIDE [Suspect]
     Dosage: DAY 1
     Route: 042
  15. CYCLOPHOSPHAMIDE [Suspect]
     Dosage: DAY 1
     Route: 042
  16. VINCRISTINE [Suspect]
     Indication: T-CELL LYMPHOMA
     Dosage: WITH A MAXIMUM OF 2 MG/M2 ON DAY 1
     Route: 042
  17. VINCRISTINE [Suspect]
     Dosage: WITH A MAXIMUM OF 1.4MG/M2 ON DAY 1
     Route: 042
  18. PREDNISONE [Suspect]
     Dosage: ON DAYS 1, 2, 3, 4 AND 5
     Route: 048
  19. MABCAMPATH [Suspect]
     Dosage: 1ST DOSE- 3 MG, 2ND DOSE- 2 MG. DURING FIRST INJECTION, OBSERVED WITH INTRAVENOUS LINE FOR 2 HOURS
     Route: 058
  20. VALACICLOVIR [Concomitant]
     Indication: PROPHYLAXIS
     Dosage: PNEUMOCYSTIS JIROVECI AND HERPES INFECTIONS PROPHYLAXIS
     Route: 065
  21. DOXORUBICIN HYDROCHLORIDE [Suspect]
     Dosage: DAY 1
     Route: 042
  22. DOXORUBICIN HYDROCHLORIDE [Suspect]
     Dosage: DAY 1
     Route: 042
  23. DOXORUBICIN HYDROCHLORIDE [Suspect]
     Dosage: DAY 1
     Route: 042
  24. DOXORUBICIN HYDROCHLORIDE [Suspect]
     Dosage: DAY 1
     Route: 042
  25. CYCLOPHOSPHAMIDE [Suspect]
     Indication: T-CELL LYMPHOMA
     Dosage: DAY 1
     Route: 042
  26. CYCLOPHOSPHAMIDE [Suspect]
     Dosage: DAY 1
     Route: 042
  27. CYCLOPHOSPHAMIDE [Suspect]
     Dosage: DAY 1
     Route: 042
  28. VINCRISTINE [Suspect]
     Dosage: WITH A MAXIMUM OF 1.4MG/M2 ON DAY 1
     Route: 042
  29. PREDNISONE [Suspect]
     Indication: T-CELL LYMPHOMA
     Dosage: ON DAYS 1, 2, 3, 4 AND 5
     Route: 048
  30. PREDNISONE [Suspect]
     Dosage: ON DAYS 1, 2, 3, 4 AND 5
     Route: 048
  31. MABCAMPATH [Suspect]
     Route: 058
  32. PEGFILGRASTIM [Concomitant]
     Indication: PRODUCT USED FOR UNKNOWN INDICATION
     Route: 058
  33. FLUCONAZOLE [Concomitant]
     Indication: PROPHYLAXIS
     Dosage: PNEUMOCYSTIS JIROVECI AND HERPES INFECTIONS PROPHYLAXIS
     Route: 065
  34. DOXORUBICIN HYDROCHLORIDE [Suspect]
     Dosage: DAY 1
     Route: 042
  35. PREDNISONE [Suspect]
     Dosage: ON DAYS 1, 2, 3, 4 AND 5
     Route: 048
  36. MABCAMPATH [Suspect]
     Route: 058
  37. ALLOPURINOL [Concomitant]
     Indication: PROPHYLAXIS
     Route: 065
  38. ACETAMINOPHEN [Concomitant]
     Indication: PREMEDICATION
     Route: 065
  39. DOXORUBICIN HYDROCHLORIDE [Suspect]
     Dosage: DAY 1
     Route: 042
  40. PREDNISONE [Suspect]
     Dosage: ON DAYS 1, 2, 3, 4 AND 5
     Route: 048
  41. MABCAMPATH [Suspect]
     Route: 058
  42. DOXORUBICIN HYDROCHLORIDE [Suspect]
     Dosage: DAY 1
     Route: 042
  43. DOXORUBICIN HYDROCHLORIDE [Suspect]
     Dosage: DAY 1
     Route: 042
  44. CYCLOPHOSPHAMIDE [Suspect]
     Dosage: DAY 1
     Route: 042
  45. VINCRISTINE [Suspect]
     Dosage: WITH A MAXIMUM OF 1.4MG/M2 ON DAY 1
     Route: 042
  46. VINCRISTINE [Suspect]
     Dosage: WITH A MAXIMUM OF 1.4MG/M2 ON DAY 1
     Route: 042
  47. VINCRISTINE [Suspect]
     Dosage: WITH A MAXIMUM OF 1.4MG/M2 ON DAY 1
     Route: 042
  48. PREDNISONE [Suspect]
     Dosage: ON DAYS 1, 2, 3, 4 AND 5
     Route: 048
  49. MABCAMPATH [Suspect]
     Route: 058
  50. DOXORUBICIN HYDROCHLORIDE [Suspect]
     Dosage: DAY 1
     Route: 042
  51. DOXORUBICIN HYDROCHLORIDE [Suspect]
     Dosage: DAY 1
     Route: 042
  52. DOXORUBICIN HYDROCHLORIDE [Suspect]
     Dosage: DAY 1
     Route: 042
  53. DOXORUBICIN HYDROCHLORIDE [Suspect]
     Dosage: DAY 1
     Route: 042
  54. PREDNISONE [Suspect]
     Dosage: ON DAYS 1, 2, 3, 4 AND 5
     Route: 048
  55. COTRIM [Concomitant]
     Indication: PROPHYLAXIS
     Dosage: PNEUMOCYSTIS JIROVECI AND HERPES INFECTIONS
     Route: 065

REACTIONS (2)
  - CYTOMEGALOVIRUS CHORIORETINITIS [None]
  - B-CELL LYMPHOMA [None]
